FAERS Safety Report 8368054-8 (Version None)
Quarter: 2012Q2

REPORT INFORMATION
  Report Type: 
  Country: None (occurrence: None)
  Receive Date: 20120516
  Receipt Date: 20120430
  Transmission Date: 20120825
  Serious: Yes (Hospitalization, Other)
  Sender: FDA-Public Use
  Company Number: INT_00070_2012

PATIENT
  Age: 3 Year
  Sex: Male
  Weight: 15 kg

DRUGS (3)
  1. PENICILLIN [Concomitant]
  2. CEFTRIAXONE [Suspect]
     Indication: PNEUMONIA
     Dosage: (100 MG/KG/DAY)
  3. AMOXICILLIN AND CLAVULANATE POTASSIUM [Concomitant]

REACTIONS (6)
  - VOMITING [None]
  - ABDOMINAL RIGIDITY [None]
  - RENAL ARTERY STENOSIS [None]
  - HYDRONEPHROSIS [None]
  - OCCULT BLOOD POSITIVE [None]
  - NEPHROLITHIASIS [None]
